FAERS Safety Report 9135471 (Version 3)
Quarter: 2013Q2

REPORT INFORMATION
  Report Type: Spontaneous
  Country: FR (occurrence: FR)
  Receive Date: 20130304
  Receipt Date: 20130416
  Transmission Date: 20140414
  Serious: Yes (Life-Threatening, Hospitalization, Other)
  Sender: FDA-Public Use
  Company Number: FR-PFIZER INC-2013070121

PATIENT
  Age: 52 Year
  Sex: Female

DRUGS (3)
  1. ADVIL [Suspect]
     Indication: INFLUENZA LIKE ILLNESS
     Dosage: 1.2 G, DAILY
     Route: 048
     Dates: start: 20130129, end: 20130201
  2. DOLIPRANE [Suspect]
     Indication: INFLUENZA LIKE ILLNESS
     Dosage: 4 G DAILY
     Route: 048
     Dates: start: 20130127, end: 20130201
  3. JOSACINE [Suspect]
     Indication: INFLUENZA LIKE ILLNESS
     Dosage: 500 MG PER DAY
     Route: 048
     Dates: start: 20130129, end: 20130129

REACTIONS (10)
  - Renal failure acute [Not Recovered/Not Resolved]
  - Anuria [Not Recovered/Not Resolved]
  - Liver injury [Recovering/Resolving]
  - Renal tubular necrosis [Not Recovered/Not Resolved]
  - Dehydration [Not Recovered/Not Resolved]
  - Diarrhoea [Not Recovered/Not Resolved]
  - Vomiting [Not Recovered/Not Resolved]
  - Myalgia [Not Recovered/Not Resolved]
  - Pyrexia [Not Recovered/Not Resolved]
  - Nausea [Not Recovered/Not Resolved]
